FAERS Safety Report 23288455 (Version 1)
Quarter: 2023Q4

REPORT INFORMATION
  Report Type: Spontaneous
  Country: US (occurrence: US)
  Receive Date: 20231212
  Receipt Date: 20231212
  Transmission Date: 20240109
  Serious: No
  Sender: FDA-Public Use
  Company Number: US-ABBVIE-5528440

PATIENT
  Sex: Female

DRUGS (1)
  1. LUPRON DEPOT [Suspect]
     Active Substance: LEUPROLIDE ACETATE
     Indication: Endometriosis
     Dosage: FREQUENCY TEXT: UNKNOWN?START DATE TEXT: UNKNOWN?STOP DATE TEXT: UNKNOWN
     Route: 065

REACTIONS (11)
  - Pain [Not Recovered/Not Resolved]
  - Insomnia [Unknown]
  - Pelvic inflammatory disease [Unknown]
  - Vomiting [Unknown]
  - Loss of personal independence in daily activities [Unknown]
  - Hot flush [Unknown]
  - Sexually transmitted disease [Unknown]
  - Pain in extremity [Unknown]
  - Underweight [Unknown]
  - Impaired work ability [Unknown]
  - Vulvovaginal pain [Unknown]
